FAERS Safety Report 11799584 (Version 3)
Quarter: 2015Q4

REPORT INFORMATION
  Report Type: Spontaneous
  Country: US (occurrence: US)
  Receive Date: 20151203
  Receipt Date: 20151214
  Transmission Date: 20160305
  Serious: No
  Sender: FDA-Public Use
  Company Number: US-BAYER-2015-481054

PATIENT
  Age: 48 Year
  Sex: Female
  Weight: 92.97 kg

DRUGS (1)
  1. ALEVE [Suspect]
     Active Substance: NAPROXEN SODIUM
     Indication: BACK PAIN
     Dosage: 2 DF, BID
     Route: 048

REACTIONS (3)
  - Product use issue [None]
  - Therapeutic response unexpected [None]
  - Intentional product misuse [None]
